FAERS Safety Report 10250575 (Version 1)
Quarter: 2014Q2

REPORT INFORMATION
  Report Type: Spontaneous
  Country: US (occurrence: US)
  Receive Date: 20140620
  Receipt Date: 20140620
  Transmission Date: 20141212
  Serious: Yes (Hospitalization)
  Sender: FDA-Public Use
  Company Number: US-GLAXOSMITHKLINE-A1077376A

PATIENT
  Age: 60 Year
  Sex: Female

DRUGS (4)
  1. VENTOLIN [Suspect]
     Indication: ASTHMA
     Dosage: 2PUFF THREE TIMES PER DAY
     Route: 055
     Dates: start: 1994
  2. ZOLOFT [Concomitant]
  3. SYNTHROID [Concomitant]
  4. TRAZODONE [Concomitant]

REACTIONS (1)
  - Myocardial infarction [Recovered/Resolved]
